FAERS Safety Report 18705234 (Version 3)
Quarter: 2021Q1

REPORT INFORMATION
  Report Type: Report from Study
  Country: None (occurrence: GR)
  Receive Date: 20210106
  Receipt Date: 20210111
  Transmission Date: 20210419
  Serious: Yes (Hospitalization, Other)
  Sender: FDA-Public Use
  Company Number: GR-ABBVIE-21K-066-3715399-00

PATIENT
  Age: 67 Year
  Sex: Male

DRUGS (5)
  1. EXELON [Concomitant]
     Active Substance: RIVASTIGMINE TARTRATE
     Indication: DEMENTIA
     Route: 062
  2. DUODOPA [Suspect]
     Active Substance: CARBIDOPA\LEVODOPA
     Indication: PARKINSON^S DISEASE
     Dosage: CR: 5.0 ML/H (DAY), 4.0 ML/H (NIGHT); ED: 2.5 ML; NO MD? DUE TO 24H ADMINISTRATION
     Route: 050
     Dates: start: 20190906, end: 20210102
  3. DUODOPA [Suspect]
     Active Substance: CARBIDOPA\LEVODOPA
     Dosage: CR: 5.0 ML/H (DAY), 4.0 ML/H (NIGHT); ED:2.5 ML; NO MD ? DUE TO 24H ADMINISTRATION
     Route: 050
     Dates: start: 20210105
  4. PARIET [Concomitant]
     Active Substance: RABEPRAZOLE SODIUM
     Indication: PRODUCT USED FOR UNKNOWN INDICATION
     Route: 048
  5. CIRCADIN [Concomitant]
     Active Substance: MELATONIN
     Indication: INSOMNIA
     Route: 048

REACTIONS (5)
  - Haemoptysis [Unknown]
  - Haematemesis [Unknown]
  - Oxygen saturation decreased [Unknown]
  - Embedded device [Recovered/Resolved]
  - Stoma site discharge [Unknown]

NARRATIVE: CASE EVENT DATE: 2021
